FAERS Safety Report 9551002 (Version 1)
Quarter: 2013Q3

REPORT INFORMATION
  Report Type: Spontaneous
  Country: US (occurrence: US)
  Receive Date: 20130924
  Receipt Date: 20130924
  Transmission Date: 20140515
  Serious: No
  Sender: FDA-Public Use
  Company Number: US-SANOFI-AVENTIS-2013SA051559

PATIENT
  Age: 55 Year
  Sex: Female
  Weight: 54.88 kg

DRUGS (9)
  1. AUBAGIO [Suspect]
     Indication: MULTIPLE SCLEROSIS
     Route: 048
     Dates: start: 20130506
  2. FENOFIBRATE [Concomitant]
  3. TOPAMAX [Concomitant]
     Indication: HEADACHE
     Dosage: FREQUENCY: 2 IN AM AND 3 IN PM
  4. ESTRADIOL [Concomitant]
     Indication: HORMONE THERAPY
  5. LASIX [Concomitant]
  6. ADDERALL [Concomitant]
     Indication: FATIGUE
  7. KLONOPIN [Concomitant]
  8. ANTIBIOTICS [Concomitant]
  9. OTHER RESPIRATORY SYSTEM PRODUCTS [Concomitant]

REACTIONS (14)
  - Headache [Recovered/Resolved]
  - Vomiting [Recovered/Resolved]
  - Fatigue [Recovered/Resolved]
  - Condition aggravated [Recovered/Resolved]
  - Myalgia [Not Recovered/Not Resolved]
  - Stress [Not Recovered/Not Resolved]
  - Hypersensitivity [Not Recovered/Not Resolved]
  - Asthma [Not Recovered/Not Resolved]
  - Rhinorrhoea [Not Recovered/Not Resolved]
  - Cough [Not Recovered/Not Resolved]
  - Blood pressure increased [Not Recovered/Not Resolved]
  - Influenza like illness [Recovered/Resolved]
  - Pain [Recovered/Resolved]
  - Multiple sclerosis [Not Recovered/Not Resolved]
